FAERS Safety Report 5093080-4 (Version None)
Quarter: 2006Q3

REPORT INFORMATION
  Report Type: 
  Country: None (occurrence: None)
  Receive Date: 20060830
  Receipt Date: 20060822
  Transmission Date: 20061208
  Serious: Yes (Life-Threatening, Hospitalization, Other)
  Sender: FDA-Public Use
  Company Number: US-JNJFOC-20040403371

PATIENT
  Sex: Male
  Weight: 113.4 kg

DRUGS (9)
  1. DURAGESIC-100 [Suspect]
     Route: 062
  2. DURAGESIC-100 [Suspect]
     Route: 062
  3. DURAGESIC-100 [Suspect]
     Route: 062
  4. DURAGESIC-100 [Suspect]
     Indication: PAIN
     Route: 062
  5. LORTAB [Suspect]
     Indication: PAIN
     Dosage: ONE TO TWO DOSES EVERY SIX HOURS PRN PAIN.
     Route: 048
  6. XANAX [Suspect]
     Indication: DRUG USE FOR UNKNOWN INDICATION
     Dosage: DAILY AT BEDTIME, ORAL
     Route: 048
  7. TOPROL-XL [Concomitant]
     Indication: HYPERTENSION
  8. NEXIUM [Concomitant]
     Indication: GASTROOESOPHAGEAL REFLUX DISEASE
  9. ZOLOFT [Concomitant]

REACTIONS (9)
  - ACCIDENTAL OVERDOSE [None]
  - APPLICATION SITE BURN [None]
  - DEEP VEIN THROMBOSIS [None]
  - DEVICE LEAKAGE [None]
  - DRUG DEPENDENCE [None]
  - INCORRECT ROUTE OF DRUG ADMINISTRATION [None]
  - MAJOR DEPRESSION [None]
  - PNEUMONIA [None]
  - RESPIRATORY FAILURE [None]
